FAERS Safety Report 5583193-2 (Version None)
Quarter: 2008Q1

REPORT INFORMATION
  Report Type: 
  Country: None (occurrence: None)
  Receive Date: 20080103
  Receipt Date: 20080103
  Transmission Date: 20080703
  Serious: Yes (Hospitalization)
  Sender: FDA-Public Use
  Company Number: None

PATIENT
  Age: 51 Year
  Sex: Male

DRUGS (1)
  1. MELOXICAM [Suspect]
     Indication: ANTIINFLAMMATORY THERAPY

REACTIONS (5)
  - DIZZINESS [None]
  - DUODENAL ULCER [None]
  - HAEMOGLOBIN DECREASED [None]
  - MELAENA [None]
  - TACHYCARDIA [None]
